FAERS Safety Report 5053129-1 (Version None)
Quarter: 2006Q3

REPORT INFORMATION
  Report Type: 
  Country: None (occurrence: None)
  Receive Date: 20060711
  Receipt Date: 20060616
  Transmission Date: 20061208
  Serious: Yes (Other)
  Sender: FDA-Public Use
  Company Number: CA200606004310

PATIENT
  Sex: Female

DRUGS (6)
  1. GEMZAR [Suspect]
     Indication: LUNG NEOPLASM MALIGNANT
     Dosage: INTRAVENOUS
     Route: 042
  2. CARBOPLATIN [Concomitant]
  3. KYTRIL [Concomitant]
  4. DECADRON [Concomitant]
  5. PROCHLORPERAZINE TAB [Concomitant]
  6. ATIVAN [Concomitant]

REACTIONS (1)
  - PERIPHERAL ISCHAEMIA [None]
